FAERS Safety Report 7392174-8 (Version None)
Quarter: 2011Q2

REPORT INFORMATION
  Report Type: 
  Country: None (occurrence: None)
  Receive Date: 20110404
  Receipt Date: 20110328
  Transmission Date: 20111010
  Serious: Yes (Other)
  Sender: FDA-Public Use
  Company Number: B0693995A

PATIENT
  Age: 47 Year
  Sex: Male

DRUGS (3)
  1. STOCRIN [Concomitant]
     Indication: HIV INFECTION
     Dosage: 3IUAX PER DAY
     Route: 048
     Dates: start: 20041201
  2. RETROVIR [Suspect]
     Indication: HIV INFECTION
     Dosage: 4IUAX PER DAY
     Route: 048
     Dates: start: 20041201
  3. EPIVIR [Suspect]
     Indication: HIV INFECTION
     Dosage: 2IUAX PER DAY
     Route: 048
     Dates: start: 20041201

REACTIONS (6)
  - HEPATIC STEATOSIS [None]
  - HYPERURICAEMIA [None]
  - THIRST [None]
  - POLYDIPSIA [None]
  - HYPERTRIGLYCERIDAEMIA [None]
  - DIABETES MELLITUS [None]
